FAERS Safety Report 6016880-2 (Version None)
Quarter: 2008Q4

REPORT INFORMATION
  Report Type: 
  Country: None (occurrence: None)
  Receive Date: 20081219
  Receipt Date: 20081205
  Transmission Date: 20090506
  Serious: Yes (Other)
  Sender: FDA-Public Use
  Company Number: 20739

PATIENT
  Age: 79 Year
  Sex: Female

DRUGS (2)
  1. METHOTREXATE [Suspect]
     Indication: RHEUMATOID ARTHRITIS
     Dosage: 25 MG FREQ UNK SC
     Route: 058
     Dates: start: 20080911, end: 20081120
  2. HUMIRA [Concomitant]

REACTIONS (1)
  - BRONCHOSPASM [None]
